FAERS Safety Report 6668933-3 (Version None)
Quarter: 2010Q2

REPORT INFORMATION
  Report Type: 
  Country: None (occurrence: None)
  Receive Date: 20100402
  Receipt Date: 20100325
  Transmission Date: 20101027
  Serious: Yes (Other)
  Sender: FDA-Public Use
  Company Number: 2010US001028

PATIENT
  Age: 81 Year
  Sex: Female

DRUGS (5)
  1. LEXISCAN [Suspect]
     Indication: CARDIOMYOPATHY
     Dosage: 0.4 MG, TOTAL DOSE, IV NOS
     Route: 042
     Dates: start: 20100323, end: 20100323
  2. ASPIRIN [Concomitant]
  3. ZOCOR [Concomitant]
  4. CYMBALTA [Concomitant]
  5. TYLENOL [Concomitant]

REACTIONS (2)
  - MUSCLE SPASMS [None]
  - TREMOR [None]
